FAERS Safety Report 18270447 (Version 1)
Quarter: 2020Q3

REPORT INFORMATION
  Report Type: Spontaneous
  Country: DE (occurrence: DE)
  Receive Date: 20200916
  Receipt Date: 20200916
  Transmission Date: 20201103
  Serious: Yes (Hospitalization, Other)
  Sender: FDA-Public Use
  Company Number: DE-SA-2020SA249428

PATIENT

DRUGS (2)
  1. LEMTRADA [Suspect]
     Active Substance: ALEMTUZUMAB
     Dosage: 12 MG, QD
     Route: 042
     Dates: end: 20180222
  2. LEMTRADA [Suspect]
     Active Substance: ALEMTUZUMAB
     Indication: IMMUNISATION
     Dosage: 12 MG, QD
     Route: 042
     Dates: start: 20170123

REACTIONS (8)
  - Vision blurred [Unknown]
  - Myalgia [Unknown]
  - Weight decreased [Unknown]
  - Hypothyroidism [Not Recovered/Not Resolved]
  - Thyroidectomy [Unknown]
  - Rash [Recovered/Resolved]
  - Telangiectasia [Recovered/Resolved]
  - Cough [Recovered/Resolved]

NARRATIVE: CASE EVENT DATE: 20170124
